FAERS Safety Report 15458784 (Version 1)
Quarter: 2018Q4

REPORT INFORMATION
  Report Type: Spontaneous
  Country: US (occurrence: US)
  Receive Date: 20181003
  Receipt Date: 20181003
  Transmission Date: 20190204
  Serious: No
  Sender: FDA-Public Use
  Company Number: US-ENDO PHARMACEUTICALS INC-2017-006027

PATIENT
  Sex: Male
  Weight: 81.63 kg

DRUGS (2)
  1. VALSTAR [Suspect]
     Active Substance: VALRUBICIN
     Indication: BLADDER CANCER
     Dosage: FIRST TREATMENT IN THE BLADDER, UNKNOWN
     Route: 043
     Dates: start: 201708, end: 201708
  2. VALSTAR [Suspect]
     Active Substance: VALRUBICIN
     Dosage: SECOND TREATMENT IN THE BLADDER, UNKNOWN
     Route: 043
     Dates: start: 201710, end: 201710

REACTIONS (6)
  - Urge incontinence [Unknown]
  - Pain [Unknown]
  - Underdose [Unknown]
  - Urinary tract infection [Unknown]
  - Unevaluable event [Unknown]
  - Bladder instillation procedure [Unknown]

NARRATIVE: CASE EVENT DATE: 2017
